FAERS Safety Report 6692635-0 (Version None)
Quarter: 2010Q2

REPORT INFORMATION
  Report Type: 
  Country: None (occurrence: None)
  Receive Date: 20100422
  Receipt Date: 20100416
  Transmission Date: 20101027
  Serious: Yes (Hospitalization, Disabling)
  Sender: FDA-Public Use
  Company Number: US-MERCK-1003USA02917

PATIENT
  Age: 71 Year
  Sex: Female
  Weight: 70 kg

DRUGS (13)
  1. FOSAMAX [Suspect]
     Indication: OSTEOPENIA
     Route: 048
     Dates: start: 19961101, end: 20100301
  2. ALLOPURINOL [Concomitant]
     Route: 065
  3. ASPIRIN [Concomitant]
     Route: 065
  4. LASIX [Concomitant]
     Route: 065
  5. LIPITOR [Concomitant]
     Route: 065
  6. METOPROLOL [Concomitant]
     Route: 065
  7. MIACALCIN [Concomitant]
     Route: 065
  8. NASACORT [Concomitant]
     Route: 065
  9. NEXIUM [Concomitant]
     Route: 065
  10. PLAVIX [Concomitant]
     Route: 065
  11. RAMIPRIL [Concomitant]
     Indication: HYPERTENSION
     Route: 065
  12. RELAFEN [Concomitant]
     Route: 065
  13. STARLIX [Concomitant]
     Indication: TYPE 2 DIABETES MELLITUS
     Route: 065

REACTIONS (4)
  - ARTHRALGIA [None]
  - FALL [None]
  - FEMUR FRACTURE [None]
  - PAIN IN EXTREMITY [None]
